FAERS Safety Report 9442620 (Version 2)
Quarter: 2013Q3

REPORT INFORMATION
  Report Type: Spontaneous
  Country: US (occurrence: US)
  Receive Date: 20130806
  Receipt Date: 20130910
  Transmission Date: 20140515
  Serious: Yes (Death, Other)
  Sender: FDA-Public Use
  Company Number: US-PFIZER INC-2013224797

PATIENT
  Age: 82 Year
  Sex: Female

DRUGS (2)
  1. REVATIO [Suspect]
     Indication: PULMONARY ARTERIAL HYPERTENSION
     Dosage: 20 MG, 3X/DAY
     Route: 048
     Dates: start: 200703
  2. TYVASO [Concomitant]
     Indication: PULMONARY HYPERTENSION
     Dosage: 9 BREATHS, 4 TIMES DAILY
     Route: 055
     Dates: start: 201206

REACTIONS (1)
  - Gastrointestinal haemorrhage [Fatal]
